FAERS Safety Report 11234406 (Version 1)
Quarter: 2015Q3

REPORT INFORMATION
  Report Type: Spontaneous
  Country: MX (occurrence: MX)
  Receive Date: 20150702
  Receipt Date: 20150702
  Transmission Date: 20151125
  Serious: Yes (Life-Threatening)
  Sender: FDA-Public Use
  Company Number: MX-ROCHE-1602162

PATIENT
  Age: 62 Year
  Sex: Female
  Weight: 58 kg

DRUGS (2)
  1. XELODA [Suspect]
     Active Substance: CAPECITABINE
     Indication: BREAST CANCER
     Dosage: 1 CYCLE ADMINISTERED?LAST DOSE PRIOR TO SAE ON 02/JUN/2015
     Route: 065
     Dates: start: 20150512
  2. LAPATINIB [Suspect]
     Active Substance: LAPATINIB
     Indication: BREAST CANCER
     Dosage: 1 CYCLE ADMINISTERED?LAST DOSE PRIOR TO SAE ON 02/JUN/2015
     Route: 065
     Dates: start: 20150512

REACTIONS (1)
  - Toxicity to various agents [Unknown]
